FAERS Safety Report 5505653-2 (Version None)
Quarter: 2007Q4

REPORT INFORMATION
  Report Type: 
  Country: None (occurrence: None)
  Receive Date: 20071102
  Receipt Date: 20071023
  Transmission Date: 20080405
  Serious: Yes (Other)
  Sender: FDA-Public Use
  Company Number: US-PFIZER INC-2007089359

PATIENT
  Sex: Female

DRUGS (4)
  1. CELEBREX [Suspect]
  2. CLINDAMYCIN HYDROCHLORIDE [Suspect]
     Indication: FURUNCLE
     Route: 048
  3. BACTRIM [Suspect]
     Indication: FURUNCLE
     Dosage: TEXT:EVERY DAY
  4. ANTIHYPERTENSIVES [Concomitant]

REACTIONS (4)
  - FUNGAL INFECTION [None]
  - PRURITUS [None]
  - RASH [None]
  - SWELLING FACE [None]
